FAERS Safety Report 18739018 (Version 2)
Quarter: 2021Q1

REPORT INFORMATION
  Report Type: Report from Study
  Country: GB (occurrence: GB)
  Receive Date: 20210114
  Receipt Date: 20210120
  Transmission Date: 20210419
  Serious: Yes (Hospitalization)
  Sender: FDA-Public Use
  Company Number: GB-ROCHE-2748522

PATIENT
  Sex: Female

DRUGS (5)
  1. ENTRECTINIB [Suspect]
     Active Substance: ENTRECTINIB
     Indication: NEOPLASM
     Dosage: THE MOST RECENT DOSE OF ENTRECTINIB PRIOR TO AE/SAE ? 03/JAN/2021
     Route: 048
     Dates: start: 20180502, end: 20210104
  2. IBUPROFEN. [Concomitant]
     Active Substance: IBUPROFEN
     Indication: CHEST PAIN
     Dates: start: 202008
  3. FUROSEMIDE. [Concomitant]
     Active Substance: FUROSEMIDE
     Indication: OEDEMA PERIPHERAL
     Dates: start: 20180919
  4. PREGABALIN. [Concomitant]
     Active Substance: PREGABALIN
     Indication: RADICULOPATHY
     Dates: start: 20201201
  5. PARACETAMOL [Concomitant]
     Active Substance: ACETAMINOPHEN
     Indication: CHEST PAIN
     Dates: start: 201804

REACTIONS (1)
  - Intervertebral disc protrusion [Recovering/Resolving]

NARRATIVE: CASE EVENT DATE: 20210104
